FAERS Safety Report 8793643 (Version 2)
Quarter: 2012Q4

REPORT INFORMATION
  Report Type: 
  Country: GR (occurrence: GR)
  Receive Date: 20120917
  Receipt Date: 20120920
  Transmission Date: 20130627
  Serious: Yes (Other)
  Sender: FDA-Public Use
  Company Number: GR-GLAXOSMITHKLINE-B0830848A

PATIENT
  Age: 28 Year
  Sex: Female

DRUGS (1)
  1. REVOLADE [Suspect]
     Indication: PRODUCT USED FOR UNKNOWN INDICATION
     Dosage: 75MG per day
     Route: 065
     Dates: end: 20120815

REACTIONS (1)
  - Rhabdomyolysis [Recovered/Resolved]
